FAERS Safety Report 7493671-7 (Version None)
Quarter: 2011Q2

REPORT INFORMATION
  Report Type: 
  Country: None (occurrence: None)
  Receive Date: 20110519
  Receipt Date: 20110519
  Transmission Date: 20111010
  Serious: Yes (Other)
  Sender: FDA-Public Use
  Company Number: None

PATIENT
  Sex: Male
  Weight: 66 kg

DRUGS (4)
  1. ALLOPURINOL [Concomitant]
  2. DRONEDARONE HCL [Suspect]
     Indication: CARDIAC FAILURE CONGESTIVE
     Dosage: 400 MG BID ORAL
     Route: 048
     Dates: start: 20100917
  3. ACETAMINOPHEN [Concomitant]
  4. ACETYLCYSTEINE [Concomitant]

REACTIONS (1)
  - PULMONARY FIBROSIS [None]
